FAERS Safety Report 4757102-X (Version None)
Quarter: 2005Q3

REPORT INFORMATION
  Report Type: 
  Country: None (occurrence: None)
  Receive Date: 20050831
  Receipt Date: 20050610
  Transmission Date: 20060218
  Serious: Yes (Hospitalization)
  Sender: FDA-Public Use
  Company Number: PHBS2005CH08243

PATIENT
  Age: 48 Year
  Sex: Male
  Weight: 81 kg

DRUGS (7)
  1. LEPONEX [Suspect]
     Indication: SCHIZOPHRENIA, PARANOID TYPE
     Dosage: 600 MG/D
     Route: 048
     Dates: start: 20050411
  2. LEPONEX [Suspect]
     Dosage: 500 MG/D
     Route: 048
  3. LEPONEX [Suspect]
     Dosage: 400 MG/D
     Route: 048
  4. LEPONEX [Suspect]
     Dosage: 900 MG/D
     Route: 048
     Dates: start: 20040101
  5. FLOXYFRAL [Suspect]
     Dosage: 50 MG/D
     Route: 048
     Dates: start: 20050411
  6. FLOXYFRAL [Suspect]
     Dosage: 25 MG/D
     Route: 048
  7. SOLIAN [Concomitant]
     Dosage: 200 MG, QID
     Route: 048
     Dates: start: 20040101

REACTIONS (10)
  - BALANCE DISORDER [None]
  - DRUG INTERACTION [None]
  - DRUG LEVEL INCREASED [None]
  - DYSTONIA [None]
  - FATIGUE [None]
  - HYPERTENSION [None]
  - MUSCULAR WEAKNESS [None]
  - PLEUROTHOTONUS [None]
  - SALIVARY HYPERSECRETION [None]
  - SINUS TACHYCARDIA [None]
